FAERS Safety Report 7793211-9 (Version None)
Quarter: 2011Q4

REPORT INFORMATION
  Report Type: 
  Country: None (occurrence: None)
  Receive Date: 20111003
  Receipt Date: 20110919
  Transmission Date: 20120403
  Serious: Yes (Hospitalization)
  Sender: FDA-Public Use
  Company Number: IL-ELI_LILLY_AND_COMPANY-IL201109007784

PATIENT
  Age: 90 Year
  Sex: Female

DRUGS (1)
  1. ONCOVIN [Suspect]

REACTIONS (3)
  - INFECTION [None]
  - SEPSIS [None]
  - CELLULITIS [None]
